FAERS Safety Report 7575830-8 (Version None)
Quarter: 2011Q2

REPORT INFORMATION
  Report Type: 
  Country: None (occurrence: None)
  Receive Date: 20110628
  Receipt Date: 20110620
  Transmission Date: 20111010
  Serious: No
  Sender: FDA-Public Use
  Company Number: US-BIOGENIDEC-2011BI022495

PATIENT
  Age: 46 Year
  Sex: Female

DRUGS (1)
  1. TYSABRI [Suspect]
     Indication: MULTIPLE SCLEROSIS
     Route: 042
     Dates: start: 20110613

REACTIONS (6)
  - FATIGUE [None]
  - BURNING SENSATION [None]
  - MENSTRUATION DELAYED [None]
  - INSOMNIA [None]
  - HYPOTENSION [None]
  - HEADACHE [None]
